FAERS Safety Report 18993547 (Version 1)
Quarter: 2021Q1

REPORT INFORMATION
  Report Type: Other
  Country: US (occurrence: US)
  Receive Date: 20210310
  Receipt Date: 20210310
  Transmission Date: 20210420
  Serious: Yes (Death)
  Sender: FDA-Public Use
  Company Number: US-ROCHE-2786512

PATIENT
  Age: 54 Year
  Sex: Male

DRUGS (1)
  1. HERCEPTIN [Suspect]
     Active Substance: TRASTUZUMAB
     Indication: PANCREATIC CARCINOMA
     Route: 042

REACTIONS (3)
  - Intentional product use issue [Unknown]
  - Death [Fatal]
  - Off label use [Unknown]

NARRATIVE: CASE EVENT DATE: 20210221
